FAERS Safety Report 12948220 (Version 1)
Quarter: 2016Q4

REPORT INFORMATION
  Report Type: Spontaneous
  Country: US (occurrence: US)
  Receive Date: 20161116
  Receipt Date: 20161116
  Transmission Date: 20170207
  Serious: Yes (Hospitalization, Other)
  Sender: FDA-Public Use
  Company Number: US-BAYER-2016-214542

PATIENT
  Sex: Female

DRUGS (1)
  1. ALEVE [Suspect]
     Active Substance: NAPROXEN SODIUM
     Indication: PAIN
     Dosage: UNK

REACTIONS (9)
  - Pain [Unknown]
  - Throat irritation [Unknown]
  - Oesophageal disorder [Unknown]
  - Dyspepsia [Unknown]
  - Discomfort [None]
  - Product use issue [None]
  - Drug prescribing error [Unknown]
  - Gastric disorder [Unknown]
  - Feeding disorder [Unknown]
